FAERS Safety Report 8481865-3 (Version None)
Quarter: 2012Q3

REPORT INFORMATION
  Report Type: 
  Country: None (occurrence: None)
  Receive Date: 20120702
  Receipt Date: 20120627
  Transmission Date: 20120928
  Serious: No
  Sender: FDA-Public Use
  Company Number: US-PFIZER INC-2012094277

PATIENT
  Sex: Female
  Weight: 72.562 kg

DRUGS (4)
  1. LYRICA [Suspect]
     Indication: NEUROPATHY PERIPHERAL
     Dosage: 50 MG, 1X/DAY
     Route: 048
     Dates: start: 20120301, end: 20120415
  2. CORDARONE [Concomitant]
     Indication: CARDIAC DISORDER
     Dosage: UNK
  3. LYRICA [Suspect]
     Dosage: UNK
     Dates: start: 20120416
  4. LYRICA [Suspect]
     Dosage: UNK

REACTIONS (5)
  - ASTHENOPIA [None]
  - PERIORBITAL OEDEMA [None]
  - FEELING ABNORMAL [None]
  - EXPIRED DRUG ADMINISTERED [None]
  - FATIGUE [None]
